FAERS Safety Report 7114144-7 (Version None)
Quarter: 2010Q4

REPORT INFORMATION
  Report Type: 
  Country: None (occurrence: None)
  Receive Date: 20101119
  Receipt Date: 20101112
  Transmission Date: 20110411
  Serious: Yes (Other)
  Sender: FDA-Public Use
  Company Number: US-ABBOTT-10P-163-0685185-00

PATIENT
  Sex: Female
  Weight: 86.26 kg

DRUGS (5)
  1. HUMIRA [Suspect]
     Indication: RHEUMATOID ARTHRITIS
     Dates: start: 20080401, end: 20090801
  2. METHOTREXATE [Concomitant]
     Indication: RHEUMATOID ARTHRITIS
  3. ETOTALAC [Concomitant]
     Indication: INFLAMMATION
  4. MULTIPLE VITAMINS [Concomitant]
     Indication: VITAMIN SUPPLEMENTATION
  5. HYDROCHLORATHIAZIDE [Concomitant]
     Indication: HYPERTENSION

REACTIONS (3)
  - COLON CANCER [None]
  - HAEMORRHOIDAL HAEMORRHAGE [None]
  - HIATUS HERNIA [None]
